FAERS Safety Report 22039223 (Version 1)
Quarter: 2023Q1

REPORT INFORMATION
  Report Type: Spontaneous
  Country: IT (occurrence: IT)
  Receive Date: 20230227
  Receipt Date: 20230227
  Transmission Date: 20230418
  Serious: Yes (Death, Other)
  Sender: FDA-Public Use
  Company Number: IT-JNJFOC-20180633939

PATIENT
  Sex: Male

DRUGS (1)
  1. IBRUTINIB [Suspect]
     Active Substance: IBRUTINIB
     Indication: Chronic lymphocytic leukaemia
     Route: 048

REACTIONS (14)
  - Sudden cardiac death [Fatal]
  - Atrial fibrillation [Unknown]
  - Spontaneous haematoma [Unknown]
  - Haemorrhage [Unknown]
  - Infection [Unknown]
  - Bradycardia [Unknown]
  - Myocardial ischaemia [Unknown]
  - Gastrointestinal haemorrhage [Unknown]
  - Ventricular arrhythmia [Unknown]
  - Peripheral arterial occlusive disease [Unknown]
  - Mucosal haemorrhage [Unknown]
  - Cardiotoxicity [Unknown]
  - Central nervous system haemorrhage [Unknown]
  - Hypertension [Unknown]
